FAERS Safety Report 16094345 (Version 3)
Quarter: 2021Q3

REPORT INFORMATION
  Report Type: Spontaneous
  Country: US (occurrence: US)
  Receive Date: 20190320
  Receipt Date: 20210716
  Transmission Date: 20211014
  Serious: No
  Sender: FDA-Public Use
  Company Number: US-PFIZER INC-2019114516

PATIENT
  Age: 76 Year
  Sex: Female

DRUGS (1)
  1. XELJANZ XR [Suspect]
     Active Substance: TOFACITINIB CITRATE
     Dosage: 11 MG, ALTERNATE DAY (EVERY OTHER DAY)

REACTIONS (6)
  - Feeling abnormal [Unknown]
  - Influenza [Unknown]
  - Diarrhoea [Unknown]
  - Asthenia [Unknown]
  - Condition aggravated [Unknown]
  - Intentional product misuse [Unknown]
